FAERS Safety Report 13785962 (Version 1)
Quarter: 2017Q3

REPORT INFORMATION
  Report Type: Spontaneous
  Country: None (occurrence: US)
  Receive Date: 20170725
  Receipt Date: 20170725
  Transmission Date: 20171127
  Serious: Yes (Hospitalization)
  Sender: FDA-Public Use
  Company Number: None

PATIENT
  Age: 69 Year
  Sex: Male
  Weight: 104.9 kg

DRUGS (2)
  1. CYTARABINE. [Suspect]
     Active Substance: CYTARABINE
     Dates: end: 20140927
  2. DAUNORUBICIN [Suspect]
     Active Substance: DAUNORUBICIN
     Dates: end: 20140923

REACTIONS (11)
  - Respiratory disorder [None]
  - Haemodialysis [None]
  - Atrial fibrillation [None]
  - Toxicity to various agents [None]
  - Cerebral disorder [None]
  - Anoxia [None]
  - Metabolic disorder [None]
  - Electroencephalogram abnormal [None]
  - Blood creatinine increased [None]
  - Brain injury [None]
  - Cerebral ischaemia [None]

NARRATIVE: CASE EVENT DATE: 20141012
